FAERS Safety Report 10458534 (Version 2)
Quarter: 2015Q1

REPORT INFORMATION
  Report Type: Spontaneous
  Country: JP (occurrence: None)
  Receive Date: 20140915
  Receipt Date: 20150108
  Transmission Date: 20150720
  Serious: Yes (Hospitalization)
  Sender: FDA-Public Use
  Company Number: KAD201409-001084

PATIENT
  Age: 65 Year
  Sex: Male
  Weight: 72.2 kg

DRUGS (7)
  1. GLIMEPIRIDE (GLIMEPIRIDE) (GLIMEPIRIDE) [Concomitant]
     Active Substance: GLIMEPIRIDE
  2. SIMEPREVIR (SIMEPREVIR) [Suspect]
     Active Substance: SIMEPREVIR
     Route: 048
  3. RIBAVIRIN (RIBAVIRIN) [Suspect]
     Active Substance: RIBAVIRIN
     Route: 048
  4. PEGINTERFERON ALFA-2B (PEGINTERFERON ALFA-2B) [Suspect]
     Active Substance: PEGINTERFERON ALFA-2B
     Dosage: INJECTION, 100 MCG/WEEK
     Route: 058
  5. URSODEOXY ACID (URSODEOXY ACID) (URSODEOXY ACID) [Concomitant]
  6. VOGLIBOSE (VOGLIBOSE) (VOGLIBOSE) [Concomitant]
  7. ALLOPURINOL (ALLOPURINOL) (ALLOPURINOL) [Concomitant]
     Active Substance: ALLOPURINOL

REACTIONS (4)
  - Liver injury [None]
  - Headache [None]
  - Abdominal distension [None]
  - Hepatitis [None]
